FAERS Safety Report 5271186-4 (Version None)
Quarter: 2007Q1

REPORT INFORMATION
  Report Type: 
  Country: None (occurrence: None)
  Receive Date: 20070315
  Receipt Date: 20070310
  Transmission Date: 20070707
  Serious: Yes (Life-Threatening, Hospitalization)
  Sender: FDA-Public Use
  Company Number: 222217

PATIENT
  Age: 44 Year
  Sex: Male
  Weight: 67 kg

DRUGS (6)
  1. MABTHERA(RITUXIMAB) CONC FOR SOLUTION FOR INFUSION [Suspect]
     Indication: B-CELL LYMPHOMA
     Dosage: 60 MG, INTRAVENOUS
     Route: 042
     Dates: start: 20060214
  2. CYCLOPHOSPHAMIDE [Concomitant]
  3. DOXORUBICIN HCL [Concomitant]
  4. VINCRISTINE [Concomitant]
  5. PREDNISONE TAB [Concomitant]
  6. G-CSF (FILGRASTIM) [Concomitant]

REACTIONS (6)
  - CHILLS [None]
  - CONVULSION [None]
  - NAUSEA [None]
  - PULSE ABSENT [None]
  - TORSADE DE POINTES [None]
  - VENTRICULAR TACHYCARDIA [None]
